FAERS Safety Report 24304328 (Version 1)
Quarter: 2024Q3

REPORT INFORMATION
  Report Type: Spontaneous
  Country: DE (occurrence: DE)
  Receive Date: 20240910
  Receipt Date: 20240910
  Transmission Date: 20241017
  Serious: Yes (Other)
  Sender: NOVARTIS
  Company Number: DE-002147023-NVSC2024DE180598

PATIENT
  Sex: Male

DRUGS (1)
  1. COSENTYX [Suspect]
     Active Substance: SECUKINUMAB
     Indication: Psoriasis
     Dosage: 300 MG, QMO
     Route: 065
     Dates: start: 20230713, end: 2024

REACTIONS (4)
  - Myopericarditis [Recovered/Resolved]
  - Chest pain [Recovered/Resolved]
  - Presyncope [Recovered/Resolved]
  - Symptom recurrence [Recovered/Resolved]

NARRATIVE: CASE EVENT DATE: 20231223
